FAERS Safety Report 5688816-5 (Version None)
Quarter: 2008Q1

REPORT INFORMATION
  Report Type: 
  Country: None (occurrence: None)
  Receive Date: 20080331
  Receipt Date: 20010926
  Transmission Date: 20080703
  Serious: Yes (Death, Hospitalization, Other)
  Sender: FDA-Public Use
  Company Number: FR-ROCHE-268876

PATIENT
  Age: 73 Year
  Sex: Female

DRUGS (9)
  1. ROCEPHIN [Suspect]
     Indication: DRUG USE FOR UNKNOWN INDICATION
     Route: 042
     Dates: start: 20010801, end: 20010904
  2. TIBERAL [Suspect]
     Indication: DRUG USE FOR UNKNOWN INDICATION
     Route: 042
     Dates: start: 20010807, end: 20010827
  3. LOVENOX [Suspect]
     Indication: DRUG USE FOR UNKNOWN INDICATION
     Route: 058
     Dates: start: 20010720, end: 20010827
  4. SURMONTIL [Suspect]
     Indication: DRUG USE FOR UNKNOWN INDICATION
     Route: 048
     Dates: start: 20000615
  5. PRO-DAFALGAN [Suspect]
     Indication: DRUG USE FOR UNKNOWN INDICATION
     Route: 042
     Dates: start: 20010720, end: 20010903
  6. MOPRAL [Suspect]
     Indication: DRUG USE FOR UNKNOWN INDICATION
     Route: 042
     Dates: start: 20010804, end: 20010904
  7. ZOPHREN [Concomitant]
     Route: 048
     Dates: start: 20010817, end: 20010904
  8. IMOVANE [Concomitant]
     Route: 048
     Dates: start: 20010818, end: 20010904
  9. LEVOTHYROXINE SODIUM [Concomitant]
     Route: 048
     Dates: start: 19920615, end: 20010904

REACTIONS (3)
  - DEATH [None]
  - OBSTRUCTIVE AIRWAYS DISORDER [None]
  - THROMBOCYTOPENIA [None]
